FAERS Safety Report 6927441-2 (Version None)
Quarter: 2010Q3

REPORT INFORMATION
  Report Type: 
  Country: None (occurrence: None)
  Receive Date: 20100817
  Receipt Date: 20100805
  Transmission Date: 20110219
  Serious: Yes (Hospitalization)
  Sender: FDA-Public Use
  Company Number: IT-JNJFOC-20100802481

PATIENT
  Age: 49 Year
  Sex: Male

DRUGS (6)
  1. REMICADE [Suspect]
     Indication: PSORIASIS
     Route: 042
  2. METHOTREXATE [Concomitant]
  3. FOLIN [Concomitant]
  4. MEDROL [Concomitant]
  5. LANSOX [Concomitant]
  6. ISONIAZID [Concomitant]

REACTIONS (1)
  - LYMPH NODE TUBERCULOSIS [None]
